FAERS Safety Report 9530170 (Version 1)
Quarter: 2013Q3

REPORT INFORMATION
  Report Type: Spontaneous
  Country: FR (occurrence: FR)
  Receive Date: 20130917
  Receipt Date: 20130917
  Transmission Date: 20140515
  Serious: Yes (Hospitalization, Other)
  Sender: FDA-Public Use
  Company Number: PHHY2013FR100120

PATIENT
  Age: 64 Year
  Sex: Female

DRUGS (2)
  1. ROPINIROLE [Suspect]
     Indication: RESTLESS LEGS SYNDROME
     Dosage: 3 MG, DAILY
  2. AGOMELATINE [Suspect]

REACTIONS (8)
  - Drug withdrawal syndrome [Unknown]
  - Weight increased [Unknown]
  - Major depression [Recovered/Resolved]
  - Depressed mood [Unknown]
  - Apathy [Unknown]
  - Compulsive shopping [Unknown]
  - Hyperphagia [Unknown]
  - Weight decreased [Unknown]
